FAERS Safety Report 10041236 (Version 1)
Quarter: 2014Q1

REPORT INFORMATION
  Report Type: Spontaneous
  Country: US (occurrence: None)
  Receive Date: 20140326
  Receipt Date: 20140326
  Transmission Date: 20141002
  Serious: Yes (Other)
  Sender: FDA-Public Use
  Company Number: None

PATIENT
  Age: 64 Year
  Sex: Female

DRUGS (1)
  1. SUTENT [Suspect]
     Route: 048
     Dates: start: 20140123

REACTIONS (2)
  - Stomatitis [None]
  - Diarrhoea [None]
